FAERS Safety Report 4889527-6 (Version None)
Quarter: 2006Q1

REPORT INFORMATION
  Report Type: 
  Country: None (occurrence: None)
  Receive Date: 20060124
  Receipt Date: 20051221
  Transmission Date: 20060701
  Serious: Yes (Other)
  Sender: FDA-Public Use
  Company Number: JP-BRISTOL-MYERS SQUIBB COMPANY-13224688

PATIENT
  Age: 36 Year
  Sex: Male

DRUGS (12)
  1. IFOMIDE [Suspect]
     Indication: TESTIS CANCER
  2. VEPESID [Suspect]
     Indication: TESTIS CANCER
  3. BRIPLATIN [Suspect]
     Indication: TESTIS CANCER
  4. TAXOL [Suspect]
     Indication: TESTICULAR MASS
  5. PARAPLATIN [Suspect]
     Indication: TESTICULAR MASS
  6. METHOTREXATE [Suspect]
     Indication: TESTICULAR MASS
  7. DOCETAXEL [Suspect]
     Indication: TESTICULAR MASS
  8. COSMEGEN [Suspect]
     Indication: TESTICULAR MASS
  9. GEMZAR [Suspect]
     Indication: TESTICULAR MASS
  10. IRINOTECAN HCL [Suspect]
     Indication: TESTICULAR MASS
  11. AQUPLA [Concomitant]
  12. BLEOMYCIN [Concomitant]

REACTIONS (4)
  - LEUKAEMIA [None]
  - MYELODYSPLASTIC SYNDROME [None]
  - REFRACTORY ANAEMIA WITH EXCESS BLASTS IN TRANSFORMATION [None]
  - TREATMENT RELATED SECONDARY MALIGNANCY [None]
